FAERS Safety Report 13738692 (Version 1)
Quarter: 2017Q3

REPORT INFORMATION
  Report Type: Report from Study
  Country: US (occurrence: US)
  Receive Date: 20170710
  Receipt Date: 20170710
  Transmission Date: 20171127
  Serious: No
  Sender: FDA-Public Use
  Company Number: US-SAOL THERAPEUTICS-2016SAO00412

PATIENT
  Age: 56 Year
  Sex: Female

DRUGS (8)
  1. CLONIDINE. [Suspect]
     Active Substance: CLONIDINE
     Dosage: 250.95 ?G, \DAY
     Route: 037
     Dates: start: 20160623
  2. BUPIVACAINE. [Suspect]
     Active Substance: BUPIVACAINE
     Dosage: 4.003 MG, \DAY
     Dates: start: 20160728
  3. DILAUDID [Suspect]
     Active Substance: HYDROMORPHONE HYDROCHLORIDE
     Dosage: 1.6011 MG, \DAY
     Dates: start: 20160728
  4. COMPOUNDED BACLOFEN [Suspect]
     Active Substance: BACLOFEN
     Indication: CANCER PAIN
     Dosage: 150.57 ?G, 1X/DAY
     Route: 037
     Dates: start: 20160623
  5. COMPOUNDED BACLOFEN [Suspect]
     Active Substance: BACLOFEN
     Indication: PAIN
     Dosage: 120.08 ?G, \DAY
     Dates: start: 20160728
  6. DILAUDID [Suspect]
     Active Substance: HYDROMORPHONE HYDROCHLORIDE
     Dosage: 2.0076 MG, \DAY
     Route: 037
     Dates: start: 20160623
  7. BUPIVACAINE. [Suspect]
     Active Substance: BUPIVACAINE
     Dosage: 5.019 MG, \DAY
     Route: 037
     Dates: start: 20160623
  8. CLONIDINE. [Suspect]
     Active Substance: CLONIDINE
     Dosage: 200.14 ?G, \DAY
     Dates: start: 20160728

REACTIONS (2)
  - Urinary retention [Recovered/Resolved]
  - Off label use [Unknown]

NARRATIVE: CASE EVENT DATE: 20160728
